FAERS Safety Report 12738911 (Version 3)
Quarter: 2016Q4

REPORT INFORMATION
  Report Type: Spontaneous
  Country: US (occurrence: US)
  Receive Date: 20160912
  Receipt Date: 20161021
  Transmission Date: 20170207
  Serious: No
  Sender: FDA-Public Use
  Company Number: US-INCYTE CORPORATION-2016IN005564

PATIENT
  Sex: Female

DRUGS (1)
  1. JAKAFI [Suspect]
     Active Substance: RUXOLITINIB
     Indication: MYELOFIBROSIS
     Dosage: 5 MG, BID
     Route: 048
     Dates: start: 20160720

REACTIONS (6)
  - Skin discolouration [Unknown]
  - Headache [Unknown]
  - Fall [Unknown]
  - Fatigue [Unknown]
  - Full blood count abnormal [Unknown]
  - Pain in extremity [Unknown]
